FAERS Safety Report 6294995-1 (Version None)
Quarter: 2009Q3

REPORT INFORMATION
  Report Type: 
  Country: None (occurrence: None)
  Receive Date: 20090803
  Receipt Date: 20090723
  Transmission Date: 20100115
  Serious: Yes (Hospitalization, Disabling)
  Sender: FDA-Public Use
  Company Number: US-MERCK-0802USA06431

PATIENT
  Age: 52 Year
  Sex: Female

DRUGS (4)
  1. FOSAMAX [Suspect]
     Indication: BONE DENSITY DECREASED
     Route: 048
     Dates: start: 20050824, end: 20060701
  2. FOSAMAX [Suspect]
     Route: 048
     Dates: start: 20060101, end: 20060701
  3. FOSAMAX [Suspect]
     Indication: OSTEOPOROSIS
     Route: 048
     Dates: start: 20050824, end: 20060701
  4. FOSAMAX [Suspect]
     Route: 048
     Dates: start: 20060101, end: 20060701

REACTIONS (34)
  - ALOPECIA [None]
  - ANAEMIA [None]
  - BACK PAIN [None]
  - CELLULITIS [None]
  - CHEILOSIS [None]
  - CHEST DISCOMFORT [None]
  - CONJUNCTIVITIS [None]
  - DYSHIDROSIS [None]
  - EAR PAIN [None]
  - EYE INFECTION [None]
  - FUNGAL INFECTION [None]
  - GLOSSITIS [None]
  - HEPATIC FUNCTION ABNORMAL [None]
  - HYPERKERATOSIS [None]
  - INJECTION SITE PAIN [None]
  - JAW DISORDER [None]
  - LUDWIG ANGINA [None]
  - LYMPHOPENIA [None]
  - ODYNOPHAGIA [None]
  - OEDEMA [None]
  - ORAL INFECTION [None]
  - OROPHARYNGEAL CANDIDIASIS [None]
  - OROPHARYNGEAL PAIN [None]
  - OSTEOMYELITIS [None]
  - PAIN IN EXTREMITY [None]
  - PERIOSTITIS [None]
  - PHARYNGITIS [None]
  - SKELETAL INJURY [None]
  - STOMATITIS [None]
  - SUBCUTANEOUS ABSCESS [None]
  - THROAT IRRITATION [None]
  - TOOTH EXTRACTION [None]
  - TRISMUS [None]
  - ULCER [None]
